FAERS Safety Report 7479128-8 (Version None)
Quarter: 2011Q2

REPORT INFORMATION
  Report Type: 
  Country: None (occurrence: None)
  Receive Date: 20110513
  Receipt Date: 20110504
  Transmission Date: 20111010
  Serious: Yes (Hospitalization)
  Sender: FDA-Public Use
  Company Number: US-BRISTOL-MYERS SQUIBB COMPANY-15719925

PATIENT
  Sex: Female

DRUGS (1)
  1. COUMADIN [Suspect]
     Dosage: 1 DF = 2.5 MG AND 5 MG

REACTIONS (1)
  - DRUG PRESCRIBING ERROR [None]
